FAERS Safety Report 9789830 (Version 2)
Quarter: 2013Q4

REPORT INFORMATION
  Report Type: Spontaneous
  Country: US (occurrence: US)
  Receive Date: 20131231
  Receipt Date: 20131231
  Transmission Date: 20140711
  Serious: Yes (Death)
  Sender: FDA-Public Use
  Company Number: US-ROCHE-1316175

PATIENT
  Sex: Female

DRUGS (1)
  1. XELODA [Suspect]
     Indication: GASTRIC CANCER
     Dosage: 500 AND 150MG TABLETS 21 DAYS ON AND 7 DAYS OFF
     Route: 048
     Dates: start: 20130720

REACTIONS (2)
  - Death [Fatal]
  - Vomiting [Unknown]
